FAERS Safety Report 8569139 (Version 3)
Quarter: 2013Q2

REPORT INFORMATION
  Report Type: Spontaneous
  Country: US (occurrence: US)
  Receive Date: 20120518
  Receipt Date: 20130627
  Transmission Date: 20140414
  Serious: Yes (Other)
  Sender: FDA-Public Use
  Company Number: US-PFIZER INC-2012120275

PATIENT
  Age: 66 Year
  Sex: Female
  Weight: 90.7 kg

DRUGS (11)
  1. LYRICA [Suspect]
     Indication: NEUROPATHY PERIPHERAL
     Dosage: 75 MG, 1X/DAY
     Route: 048
  2. LOVASTATIN [Concomitant]
     Indication: CARDIAC DISORDER
     Dosage: 40 MG, 1X/DAY
  3. GLIPIZIDE [Concomitant]
     Indication: DIABETES MELLITUS
     Dosage: 5 MG, 2X/DAY
  4. ISOSORBIDE [Concomitant]
     Dosage: 30 MG, 1X/DAY
  5. TORSEMIDE [Concomitant]
     Dosage: 100 MG, 1X/DAY
  6. CLONAZEPAM [Concomitant]
     Dosage: 0.5 MG, 2X/DAY
  7. CARVEDILOL [Concomitant]
     Dosage: 12.5 MG, 2X/DAY
  8. CALCITRIOL [Concomitant]
     Dosage: 0.25 MG, 3X/WEEK
  9. OMEPRAZOLE [Concomitant]
     Dosage: 20 MG, 2X/DAY
  10. NOVOLIN 70/30 [Concomitant]
     Dosage: 90 UNITS AT NIGHT AND 45 UNITS AT MORNING
  11. EPOGEN [Concomitant]
     Dosage: 44000 UNITS, WEEKLY

REACTIONS (2)
  - Renal impairment [Unknown]
  - Pain in extremity [Unknown]
